FAERS Safety Report 5909557-2 (Version None)
Quarter: 2008Q4

REPORT INFORMATION
  Report Type: 
  Country: None (occurrence: None)
  Receive Date: 20081002
  Receipt Date: 20080924
  Transmission Date: 20090506
  Serious: Yes (Hospitalization)
  Sender: FDA-Public Use
  Company Number: WAES 0807USA04312

PATIENT
  Age: 52 Year
  Sex: Male
  Weight: 58.9676 kg

DRUGS (20)
  1. TAB RALTEGRAVIR POTASSIUM [Suspect]
     Dosage: 400 MG/BID/PO
     Route: 048
     Dates: start: 20080424, end: 20080718
  2. TAB RALTEGRAVIR POTASSIUM [Suspect]
     Dosage: 400 MG/BID/PO
     Route: 048
     Dates: start: 20080724
  3. DARUNAVIR [Suspect]
     Dosage: 600 MG/BID/PO
     Route: 048
     Dates: start: 20080424, end: 20080718
  4. DARUNAVIR [Suspect]
     Dosage: 600 MG/BID/PO
     Route: 048
     Dates: start: 20080724
  5. ETRAVIRINE [Suspect]
     Dosage: 200 MG/BID/PO
     Route: 048
     Dates: start: 20080424, end: 20080718
  6. ETRAVIRINE [Suspect]
     Dosage: 200 MG/BID/PO
     Route: 048
     Dates: start: 20080724
  7. TRUVADA [Suspect]
     Dosage: 500 MG/DAILY/PO
     Dates: start: 20080424, end: 20080718
  8. TRUVADA [Suspect]
     Dosage: 500 MG/DAILY/PO
     Dates: start: 20080724
  9. RITONAVIR [Suspect]
     Dosage: 100 MG/BID/PO
     Route: 048
     Dates: start: 20080424, end: 20080718
  10. RITONAVIR [Suspect]
     Dosage: 100 MG/BID/PO
     Route: 048
     Dates: start: 20080724
  11. ZIDOVUDINE [Suspect]
     Dosage: 300 MG/BID/PO
     Route: 048
     Dates: start: 20050228, end: 20080718
  12. AMBIEN [Concomitant]
  13. IMODIUM A-D [Concomitant]
  14. INDERAL [Concomitant]
  15. LUNESTA [Concomitant]
  16. MEPRON [Concomitant]
  17. NEBUPENT [Concomitant]
  18. RESTORIL [Concomitant]
  19. TRICOR [Concomitant]
  20. TESTOSTERONE [Concomitant]

REACTIONS (1)
  - RHABDOMYOLYSIS [None]
